FAERS Safety Report 13886330 (Version 6)
Quarter: 2020Q4

REPORT INFORMATION
  Report Type: Report from Study
  Country: CA (occurrence: CA)
  Receive Date: 20170821
  Receipt Date: 20201211
  Transmission Date: 20210113
  Serious: Yes (Death, Hospitalization, Other)
  Sender: FDA-Public Use
  Company Number: CA-JNJFOC-20170812746

PATIENT
  Age: 54 Year
  Sex: Female
  Weight: 83.46 kg

DRUGS (4)
  1. REMICADE [Suspect]
     Active Substance: INFLIXIMAB
     Dosage: STRENGTH = 100 MG
     Route: 042
  2. DALTEPARIN [Concomitant]
     Active Substance: DALTEPARIN
     Indication: VENA CAVA THROMBOSIS
     Route: 065
  3. REMICADE [Suspect]
     Active Substance: INFLIXIMAB
     Indication: CROHN^S DISEASE
     Route: 042
     Dates: start: 20101007
  4. REMICADE [Suspect]
     Active Substance: INFLIXIMAB
     Route: 042
     Dates: start: 20170814

REACTIONS (7)
  - Death [Fatal]
  - Metastases to liver [Unknown]
  - Dehydration [Unknown]
  - Urinary tract infection [Unknown]
  - Abdominal pain [Unknown]
  - Arthralgia [Unknown]
  - Vena cava thrombosis [Unknown]

NARRATIVE: CASE EVENT DATE: 20170813
